FAERS Safety Report 23437835 (Version 2)
Quarter: 2024Q1

REPORT INFORMATION
  Report Type: Spontaneous
  Country: US (occurrence: US)
  Receive Date: 20240124
  Receipt Date: 20240125
  Transmission Date: 20240410
  Serious: No
  Sender: FDA-Public Use
  Company Number: US-PFIZER INC-202400017888

PATIENT
  Age: 80 Year
  Sex: Female
  Weight: 49.44 kg

DRUGS (2)
  1. PAXLOVID [Interacting]
     Active Substance: NIRMATRELVIR\RITONAVIR
     Indication: COVID-19 treatment
     Dosage: UNK
     Dates: start: 20240104, end: 20240109
  2. MOXA [Concomitant]

REACTIONS (4)
  - Drug interaction [Unknown]
  - Abdominal pain [Unknown]
  - Product lot number issue [Unknown]
  - Product expiration date issue [Unknown]
